FAERS Safety Report 18746062 (Version 1)
Quarter: 2021Q1

REPORT INFORMATION
  Report Type: Spontaneous
  Country: AU (occurrence: AU)
  Receive Date: 20210115
  Receipt Date: 20210115
  Transmission Date: 20210419
  Serious: Yes (Hospitalization)
  Sender: FDA-Public Use
  Company Number: AU-NOVOPROD-778690

PATIENT
  Age: 81 Year
  Sex: Female

DRUGS (1)
  1. NOVOMIX 30 PENFILL [Suspect]
     Active Substance: INSULIN ASPART
     Indication: DIABETES MELLITUS
     Dosage: 56 IU, QD(36 UNITS IN THE MORNING, 20 UNITS AT NIGHT)
     Route: 065

REACTIONS (1)
  - Hospitalisation [Unknown]
